FAERS Safety Report 5201912-1 (Version None)
Quarter: 2006Q4

REPORT INFORMATION
  Report Type: 
  Country: None (occurrence: None)
  Receive Date: 20061010
  Receipt Date: 20060321
  Transmission Date: 20070319
  Serious: Yes (Hospitalization, Disabling)
  Sender: FDA-Public Use
  Company Number: 2006-03-1446

PATIENT
  Age: 51 Year
  Sex: Male
  Weight: 74.3899 kg

DRUGS (6)
  1. TEMODAR [Suspect]
     Indication: GLIOBLASTOMA
     Dosage: 140 MG ORAL
     Route: 048
     Dates: start: 20051101, end: 20051206
  2. RADIATION THERAPY [Suspect]
     Indication: GLIOBLASTOMA
     Dosage: X-RAY THERAPY
  3. COMPAZINE [Concomitant]
  4. BACTRIM [Concomitant]
  5. DECADRON [Concomitant]
  6. KEPPRA [Concomitant]

REACTIONS (2)
  - ASTHENIA [None]
  - PANCYTOPENIA [None]
